FAERS Safety Report 4699513-7 (Version None)
Quarter: 2005Q2

REPORT INFORMATION
  Report Type: 
  Country: None (occurrence: None)
  Receive Date: 20050622
  Receipt Date: 20050609
  Transmission Date: 20051028
  Serious: Yes (Death)
  Sender: FDA-Public Use
  Company Number: 180/110PHAMED

PATIENT
  Age: 39 Year
  Sex: Female

DRUGS (2)
  1. PROSTIN E2 [Suspect]
     Indication: LABOUR INDUCTION
     Dosage: 3 MG (3 MG,SINGLE DOSE),VAGINAL
     Route: 067
     Dates: start: 19990813, end: 19990813
  2. OXYTOCIN 10 USP UNITS IN DEXTROSE 5% [Concomitant]

REACTIONS (6)
  - BREECH DELIVERY [None]
  - COMPLICATION OF DELIVERY [None]
  - HAEMORRHAGE [None]
  - INCORRECT DRUG ADMINISTRATION DURATION [None]
  - LABOUR COMPLICATION [None]
  - UTERINE RUPTURE [None]
